FAERS Safety Report 6526832-1 (Version None)
Quarter: 2010Q1

REPORT INFORMATION
  Report Type: 
  Country: None (occurrence: None)
  Receive Date: 20100105
  Receipt Date: 20091224
  Transmission Date: 20100710
  Serious: Yes (Hospitalization)
  Sender: FDA-Public Use
  Company Number: US-ELI_LILLY_AND_COMPANY-US200910007380

PATIENT
  Sex: Male
  Weight: 43.991 kg

DRUGS (21)
  1. STRATTERA [Suspect]
     Indication: GENERALISED ANXIETY DISORDER
     Dosage: 60 MG, DAILY (1/D)
     Route: 065
     Dates: start: 20030601
  2. STRATTERA [Suspect]
     Dosage: 60 MG, DAILY (1/D)
     Route: 048
     Dates: start: 20050404, end: 20080929
  3. STRATTERA [Suspect]
     Dosage: 65 MG, DAILY (1/D)
     Route: 048
     Dates: start: 20080929, end: 20081010
  4. STRATTERA [Suspect]
     Dosage: 20 MG, DAILY (1/D)
     Route: 048
     Dates: start: 20081010, end: 20081017
  5. STRATTERA [Suspect]
     Dosage: 10 MG, DAILY (1/D)
     Route: 048
     Dates: start: 20081018, end: 20081025
  6. STRATTERA [Suspect]
     Dosage: 40 MG, DAILY (1/D)
     Route: 048
     Dates: start: 20090605, end: 20090714
  7. STRATTERA [Suspect]
     Dosage: 18 MG, DAILY (1/D)
     Route: 048
     Dates: start: 20090513, end: 20090520
  8. STRATTERA [Suspect]
     Dosage: 25 MG, DAILY (1/D)
     Route: 048
     Dates: start: 20090101, end: 20090101
  9. STRATTERA [Suspect]
     Dosage: 60 MG, DAILY (1/D)
     Route: 048
     Dates: start: 20090714
  10. TRAZODONE HCL [Concomitant]
     Indication: SLEEP DISORDER
     Dosage: 25 MG, UNKNOWN
     Route: 065
  11. TRAZODONE HCL [Concomitant]
     Dosage: 50 MG, UNKNOWN
     Route: 065
     Dates: start: 20070601
  12. TRAZODONE HCL [Concomitant]
     Dosage: 25 MG, UNKNOWN
     Route: 065
     Dates: start: 20080101, end: 20090101
  13. SEROQUEL [Concomitant]
     Indication: SLEEP DISORDER
     Dosage: 100 MG, 2/D
     Route: 065
  14. SEROQUEL [Concomitant]
     Dosage: 300 MG, UNKNOWN
     Route: 065
     Dates: start: 20080501
  15. SEROQUEL [Concomitant]
     Dosage: 400 MG, DAILY (1/D)
     Dates: start: 20090101
  16. SEROQUEL [Concomitant]
     Dosage: 300 MG, UNKNOWN
     Route: 065
     Dates: start: 20090701
  17. SEROQUEL [Concomitant]
     Dosage: 400 MG, UNKNOWN
     Route: 065
     Dates: start: 20090901
  18. SEROQUEL [Concomitant]
     Dosage: 150 MG, DAILY (1/D)
     Route: 065
     Dates: start: 20091001
  19. ADDERALL 10 [Concomitant]
     Dosage: UNK, UNKNOWN
     Route: 065
     Dates: start: 20090401
  20. CONCERTA [Concomitant]
     Dosage: 18 MG, UNKNOWN
     Route: 065
     Dates: start: 20081101
  21. CONCERTA [Concomitant]
     Dosage: 36 MG, UNKNOWN
     Route: 065
     Dates: start: 20081101, end: 20090101

REACTIONS (3)
  - DRUG WITHDRAWAL SYNDROME [None]
  - OFF LABEL USE [None]
  - PANIC ATTACK [None]
